FAERS Safety Report 10998078 (Version 1)
Quarter: 2015Q2

REPORT INFORMATION
  Report Type: Report from Study
  Country: DE (occurrence: FR)
  Receive Date: 20150408
  Receipt Date: 20150408
  Transmission Date: 20150821
  Serious: Yes (Death, Hospitalization)
  Sender: FDA-Public Use
  Company Number: DE-ACTELION-A-NJ2015-114573

PATIENT
  Age: 76 Year
  Sex: Male

DRUGS (11)
  1. VENTAVIS [Suspect]
     Active Substance: ILOPROST
     Dosage: 2.5 MCG, UNK
     Route: 055
     Dates: start: 2015
  2. DIFFU K [Concomitant]
     Active Substance: POTASSIUM CHLORIDE
  3. ALLOPURINOL. [Concomitant]
     Active Substance: ALLOPURINOL
  4. LASILIX [Concomitant]
     Active Substance: FUROSEMIDE
     Dosage: 160 MG, QD
  5. PREVISCAN [Concomitant]
     Active Substance: FLUINDIONE
  6. VENTAVIS [Suspect]
     Active Substance: ILOPROST
     Dosage: 5 MCG, 6LD
     Route: 055
  7. LASILIX [Concomitant]
     Active Substance: FUROSEMIDE
     Dosage: 120 MG, QD
  8. VENTAVIS [Suspect]
     Active Substance: ILOPROST
     Indication: PULMONARY ARTERIAL HYPERTENSION
     Dosage: 5 MCG, 6LD
     Route: 055
     Dates: start: 20140413, end: 2015
  9. DIGOXINE [Concomitant]
     Active Substance: DIGOXIN
  10. INEXIUM [Concomitant]
     Active Substance: ESOMEPRAZOLE
  11. ALDACTONE [Concomitant]
     Active Substance: SPIRONOLACTONE

REACTIONS (9)
  - Oxygen saturation decreased [Fatal]
  - Dyspnoea [Fatal]
  - Oxygen saturation decreased [Unknown]
  - Pulmonary arterial hypertension [Fatal]
  - Cardiac failure [Fatal]
  - Cardio-respiratory arrest [Fatal]
  - Syncope [Fatal]
  - Iron deficiency anaemia [Unknown]
  - Heart rate increased [Unknown]

NARRATIVE: CASE EVENT DATE: 20150228
